FAERS Safety Report 11111285 (Version 1)
Quarter: 2015Q2

REPORT INFORMATION
  Report Type: Spontaneous
  Country: US (occurrence: US)
  Receive Date: 20150513
  Receipt Date: 20150513
  Transmission Date: 20150821
  Serious: Yes (Hospitalization, Other)
  Sender: FDA-Public Use
  Company Number: US-GLAXOSMITHKLINE-US2015GSK064559

PATIENT
  Sex: Male

DRUGS (12)
  1. ADVAIR DISKUS [Suspect]
     Active Substance: FLUTICASONE PROPIONATE\SALMETEROL XINAFOATE
     Indication: DYSPNOEA
     Dosage: 1 PUFF(S), BID
     Route: 055
     Dates: start: 2012, end: 2014
  2. ASPIRIN. [Concomitant]
     Active Substance: ASPIRIN
  3. ADVAIR DISKUS [Suspect]
     Active Substance: FLUTICASONE PROPIONATE\SALMETEROL XINAFOATE
     Dosage: UNK, QD
     Route: 055
     Dates: start: 2014
  4. METOPROLOL [Concomitant]
     Active Substance: METOPROLOL
  5. OXYGEN. [Concomitant]
     Active Substance: OXYGEN
  6. SPIRIVA [Concomitant]
     Active Substance: TIOTROPIUM BROMIDE MONOHYDRATE
  7. LISINOPRIL. [Concomitant]
     Active Substance: LISINOPRIL
  8. FUROSEMIDE. [Concomitant]
     Active Substance: FUROSEMIDE
  9. ATORVASTATIN [Concomitant]
     Active Substance: ATORVASTATIN
  10. XANAX [Concomitant]
     Active Substance: ALPRAZOLAM
  11. PANTOPRAZOLE [Concomitant]
     Active Substance: PANTOPRAZOLE SODIUM
  12. COLACE [Concomitant]
     Active Substance: DOCUSATE SODIUM

REACTIONS (11)
  - Stent placement [Recovered/Resolved]
  - Dyspnoea [Recovered/Resolved]
  - Hospitalisation [Unknown]
  - Rehabilitation therapy [Unknown]
  - Inappropriate schedule of drug administration [Unknown]
  - Cardiac pacemaker insertion [Recovered/Resolved]
  - Product use issue [Unknown]
  - Heart valve replacement [Recovered/Resolved]
  - Implantable defibrillator insertion [Recovered/Resolved]
  - Cardiac pacemaker removal [Recovered/Resolved]
  - Drug ineffective for unapproved indication [Unknown]

NARRATIVE: CASE EVENT DATE: 2013
